FAERS Safety Report 6202696-0 (Version None)
Quarter: 2009Q2

REPORT INFORMATION
  Report Type: 
  Country: None (occurrence: None)
  Receive Date: 20090526
  Receipt Date: 20090515
  Transmission Date: 20091009
  Serious: Yes (Other)
  Sender: FDA-Public Use
  Company Number: PHHY2009ZA18836

PATIENT
  Sex: Female

DRUGS (1)
  1. RITALIN LA [Suspect]
     Dosage: 20 MG, UNK
     Route: 048

REACTIONS (2)
  - ACCIDENTAL EXPOSURE [None]
  - EYE HAEMORRHAGE [None]
